FAERS Safety Report 12982820 (Version 2)
Quarter: 2016Q4

REPORT INFORMATION
  Report Type: Spontaneous
  Country: US (occurrence: US)
  Receive Date: 20161129
  Receipt Date: 20161208
  Transmission Date: 20170207
  Serious: Yes (Other)
  Sender: FDA-Public Use
  Company Number: US-PFIZER INC-2016542736

PATIENT
  Age: 66 Year
  Sex: Female

DRUGS (2)
  1. INTAL [Suspect]
     Active Substance: CROMOLYN SODIUM
     Indication: ASTHMA
     Dosage: UNK
  2. SPIRIVA [Suspect]
     Active Substance: TIOTROPIUM BROMIDE MONOHYDRATE
     Indication: ASTHMA
     Dosage: UNK

REACTIONS (4)
  - Cough [Unknown]
  - Condition aggravated [Unknown]
  - Drug hypersensitivity [Unknown]
  - Wheezing [Unknown]
